FAERS Safety Report 4999218-9 (Version None)
Quarter: 2006Q2

REPORT INFORMATION
  Report Type: 
  Country: None (occurrence: None)
  Receive Date: 20060511
  Receipt Date: 20060428
  Transmission Date: 20061013
  Serious: Yes (Hospitalization, Other)
  Sender: FDA-Public Use
  Company Number: HQWYE039428APR06

PATIENT
  Sex: Female

DRUGS (1)
  1. ENBREL [Suspect]
     Indication: RHEUMATOID ARTHRITIS
     Route: 058
     Dates: start: 20051114, end: 20060130

REACTIONS (3)
  - PANCYTOPENIA [None]
  - SALMONELLA SEPSIS [None]
  - SYSTEMIC LUPUS ERYTHEMATOSUS [None]
